FAERS Safety Report 10244888 (Version 3)
Quarter: 2014Q3

REPORT INFORMATION
  Report Type: Spontaneous
  Country: US (occurrence: US)
  Receive Date: 20140618
  Receipt Date: 20140912
  Transmission Date: 20150326
  Serious: No
  Sender: FDA-Public Use
  Company Number: US-GALDERMA-US14001202

PATIENT
  Age: 52 Year
  Sex: Female

DRUGS (1)
  1. MIRVASO [Suspect]
     Active Substance: BRIMONIDINE TARTRATE
     Indication: ROSACEA
     Dosage: 0.33%
     Route: 061
     Dates: start: 201309, end: 201311

REACTIONS (12)
  - Rebound effect [Recovered/Resolved]
  - Dermatitis [Unknown]
  - Rash macular [Recovered/Resolved]
  - Erythema [Recovered/Resolved]
  - Feeling hot [Recovered/Resolved]
  - Drug ineffective [Recovered/Resolved]
  - Condition aggravated [Recovered/Resolved]
  - Flushing [Recovered/Resolved]
  - Rash macular [Unknown]
  - Feeling cold [Recovered/Resolved]
  - Drug dependence [Recovered/Resolved]
  - Inappropriate schedule of drug administration [Recovered/Resolved]

NARRATIVE: CASE EVENT DATE: 201310
